FAERS Safety Report 9258525 (Version 2)
Quarter: 2013Q2

REPORT INFORMATION
  Report Type: Spontaneous
  Country: US (occurrence: US)
  Receive Date: 20130426
  Receipt Date: 20130428
  Transmission Date: 20140414
  Serious: Yes (Life-Threatening, Hospitalization, Other)
  Sender: FDA-Public Use
  Company Number: US-009507513-1304USA010316

PATIENT
  Age: 85 Year
  Sex: Female

DRUGS (4)
  1. PRINIVIL [Suspect]
     Indication: HYPERTENSION
     Dosage: 10 MG, QD
     Route: 048
  2. PRINIVIL [Suspect]
     Dosage: 20 MG, QD
     Route: 048
  3. COUMADIN [Concomitant]
     Dosage: 2.5 MG, QD
  4. LANOXIN [Concomitant]
     Dosage: 0.125 MG, EVERY 48 HOURS
     Route: 048

REACTIONS (6)
  - Wheezing [Recovered/Resolved]
  - Dyspnoea [Recovered/Resolved]
  - Lip swelling [Recovering/Resolving]
  - Swelling face [Recovered/Resolved]
  - Cough [Recovered/Resolved]
  - Hypertension [Unknown]
